FAERS Safety Report 21957357 (Version 1)
Quarter: 2023Q1

REPORT INFORMATION
  Report Type: Spontaneous
  Country: US (occurrence: US)
  Receive Date: 20230206
  Receipt Date: 20230206
  Transmission Date: 20230418
  Serious: No
  Sender: FDA-Public Use
  Company Number: US-AMNEAL PHARMACEUTICALS-2022-AMRX-03682

PATIENT

DRUGS (4)
  1. BUPRENORPHINE TRANSDERMAL SYSTEM [Suspect]
     Active Substance: BUPRENORPHINE
     Indication: Back pain
     Dosage: 5 MICROGRAM
     Route: 062
  2. BUPRENORPHINE TRANSDERMAL SYSTEM [Suspect]
     Active Substance: BUPRENORPHINE
     Dosage: 7.5 MICROGRAM
     Route: 062
  3. BUPRENORPHINE TRANSDERMAL SYSTEM [Suspect]
     Active Substance: BUPRENORPHINE
     Dosage: 5 MICROGRAM
     Route: 062
  4. BETAMETASON [Concomitant]
     Indication: Product used for unknown indication
     Route: 065

REACTIONS (3)
  - Therapeutic response decreased [Unknown]
  - Wrong technique in device usage process [Unknown]
  - Application site pain [Not Recovered/Not Resolved]

NARRATIVE: CASE EVENT DATE: 20220101
